FAERS Safety Report 24007244 (Version 1)
Quarter: 2024Q2

REPORT INFORMATION
  Report Type: Spontaneous
  Country: US (occurrence: US)
  Receive Date: 20240624
  Receipt Date: 20240624
  Transmission Date: 20240716
  Serious: No
  Sender: FDA-Public Use
  Company Number: US-ABBVIE-5812754

PATIENT

DRUGS (1)
  1. NAMENDA XR [Suspect]
     Active Substance: MEMANTINE HYDROCHLORIDE
     Indication: Pain
     Route: 048

REACTIONS (2)
  - Allergic reaction to excipient [Unknown]
  - Drug ineffective [Unknown]
